FAERS Safety Report 4282993-9 (Version None)
Quarter: 2004Q1

REPORT INFORMATION
  Report Type: 
  Country: None (occurrence: None)
  Receive Date: 20040130
  Receipt Date: 20031205
  Transmission Date: 20041129
  Serious: No
  Sender: FDA-Public Use
  Company Number: WAES 0312USA00786

PATIENT
  Age: 75 Year
  Sex: Female

DRUGS (5)
  1. TYLENOL [Concomitant]
  2. FOSAMAX [Suspect]
     Indication: OSTEOPOROSIS
     Route: 048
     Dates: end: 20031201
  3. FOSAMAX [Suspect]
     Route: 048
  4. LIBRIUM [Concomitant]
  5. TAVIST [Concomitant]

REACTIONS (2)
  - HEADACHE [None]
  - VISION BLURRED [None]
